FAERS Safety Report 24269185 (Version 1)
Quarter: 2024Q3

REPORT INFORMATION
  Report Type: Spontaneous
  Country: TR (occurrence: TR)
  Receive Date: 20240830
  Receipt Date: 20240830
  Transmission Date: 20241017
  Serious: Yes (Other)
  Sender: NOVARTIS
  Company Number: TR-002147023-NVSC2023TR281039

PATIENT
  Sex: Male
  Weight: 65 kg

DRUGS (4)
  1. GLIVEC [Suspect]
     Active Substance: IMATINIB MESYLATE
     Indication: Chronic myeloid leukaemia
     Dosage: UNK
     Route: 065
     Dates: start: 2000, end: 2010
  2. TASIGNA [Suspect]
     Active Substance: NILOTINIB
     Indication: Chronic myeloid leukaemia
     Dosage: UNK
     Route: 065
     Dates: start: 2011, end: 2012
  3. DASATINIB [Suspect]
     Active Substance: DASATINIB
     Indication: Chronic myeloid leukaemia
     Dosage: UNK
     Route: 065
     Dates: start: 2023
  4. DASATINIB [Suspect]
     Active Substance: DASATINIB
     Dosage: 70 MG
     Route: 065
     Dates: start: 2023

REACTIONS (29)
  - Chronic myeloid leukaemia [Unknown]
  - Malignant neoplasm progression [Unknown]
  - Cytopenia [Unknown]
  - Thrombocytopenia [Unknown]
  - Neutropenia [Unknown]
  - Drug resistance [Unknown]
  - Monocyte count decreased [Unknown]
  - Lymphocyte count decreased [Unknown]
  - Protein total decreased [Unknown]
  - Neutrophil count decreased [Unknown]
  - Blood sodium decreased [Unknown]
  - Blood calcium decreased [Unknown]
  - Blood albumin decreased [Unknown]
  - Red blood cell count decreased [Unknown]
  - Haemoglobin decreased [Unknown]
  - Haematocrit decreased [Unknown]
  - Platelet count decreased [Unknown]
  - Procalcitonin decreased [Unknown]
  - Gamma-glutamyltransferase increased [Unknown]
  - C-reactive protein increased [Unknown]
  - Blood uric acid increased [Unknown]
  - Blood urea increased [Unknown]
  - Blood phosphorus increased [Unknown]
  - Blood lactate dehydrogenase increased [Unknown]
  - Blood glucose increased [Unknown]
  - Blood alkaline phosphatase increased [Unknown]
  - Bilirubin conjugated increased [Unknown]
  - Basophil count increased [Unknown]
  - Red cell distribution width increased [Unknown]
